FAERS Safety Report 7124183-8 (Version None)
Quarter: 2010Q4

REPORT INFORMATION
  Report Type: 
  Country: None (occurrence: None)
  Receive Date: 20101126
  Receipt Date: 20101118
  Transmission Date: 20110411
  Serious: Yes (Other)
  Sender: FDA-Public Use
  Company Number: JP-BRISTOL-MYERS SQUIBB COMPANY-15401227

PATIENT
  Age: 40 Year
  Sex: Male

DRUGS (2)
  1. CISPLATIN [Suspect]
     Indication: THYMIC CANCER METASTATIC
     Dosage: ON DAY 1
  2. AMRUBICIN HCL [Suspect]
     Indication: THYMIC CANCER METASTATIC
     Dosage: DAYS 1-3

REACTIONS (4)
  - ANAEMIA [None]
  - NEUTROPENIA [None]
  - THROMBOCYTOPENIA [None]
  - VENTRICULAR TACHYCARDIA [None]
